FAERS Safety Report 8157151-8 (Version None)
Quarter: 2012Q1

REPORT INFORMATION
  Report Type: 
  Country: None (occurrence: None)
  Receive Date: 20120222
  Receipt Date: 20120215
  Transmission Date: 20120608
  Serious: Yes (Hospitalization)
  Sender: FDA-Public Use
  Company Number: JP-ROCHE-1037098

PATIENT
  Sex: Female
  Weight: 67 kg

DRUGS (6)
  1. AVASTIN [Suspect]
     Indication: COLON CANCER METASTATIC
     Route: 041
     Dates: start: 20111121, end: 20111121
  2. ISOVORIN [Concomitant]
     Indication: COLON CANCER METASTATIC
     Route: 041
     Dates: start: 20111121, end: 20111121
  3. ALOXI [Concomitant]
     Route: 041
     Dates: start: 20110121, end: 20111121
  4. FLUOROURACIL [Concomitant]
     Indication: COLON CANCER METASTATIC
     Route: 041
     Dates: start: 20111121, end: 20111123
  5. IRINOTECAN HCL [Concomitant]
     Indication: COLON CANCER METASTATIC
     Route: 041
     Dates: start: 20111121, end: 20111121
  6. DECADRON [Concomitant]
     Route: 041

REACTIONS (2)
  - OXYGEN SATURATION DECREASED [None]
  - HAEMOPTYSIS [None]
